FAERS Safety Report 13632612 (Version 1)
Quarter: 2017Q2

REPORT INFORMATION
  Report Type: Spontaneous
  Country: US (occurrence: US)
  Receive Date: 20170531
  Receipt Date: 20170531
  Transmission Date: 20170830
  Serious: No
  Sender: FDA-Public Use
  Company Number: US-ASTELLAS-1468367

PATIENT
  Sex: Female

DRUGS (8)
  1. LOSARTAN. [Concomitant]
     Active Substance: LOSARTAN
  2. DEXILANT [Concomitant]
     Active Substance: DEXLANSOPRAZOLE
  3. CELEBREX [Concomitant]
     Active Substance: CELECOXIB
  4. FISH OIL [Concomitant]
     Active Substance: FISH OIL
  5. CLARITIN [Concomitant]
     Active Substance: LORATADINE
  6. DETROL [Concomitant]
     Active Substance: TOLTERODINE TARTRATE
  7. COENZYME Q-10 [Concomitant]
  8. TARCEVA [Suspect]
     Active Substance: ERLOTINIB HYDROCHLORIDE
     Indication: PRODUCT USED FOR UNKNOWN INDICATION
     Route: 048
     Dates: start: 20141002

REACTIONS (4)
  - Diarrhoea [Unknown]
  - Dry skin [Not Recovered/Not Resolved]
  - Rhinorrhoea [Not Recovered/Not Resolved]
  - Acne [Unknown]
